FAERS Safety Report 5384647-4 (Version None)
Quarter: 2007Q3

REPORT INFORMATION
  Report Type: 
  Country: None (occurrence: None)
  Receive Date: 20070711
  Receipt Date: 20070305
  Transmission Date: 20080115
  Serious: Yes (Hospitalization)
  Sender: FDA-Public Use
  Company Number: US-BOEHRINGER INGELHEIM PHARMACEUTICALS, INC.-2006-BP-09118BP

PATIENT
  Sex: Female

DRUGS (17)
  1. MIRAPEX [Suspect]
     Indication: PARKINSON'S DISEASE
     Route: 048
     Dates: start: 20000801, end: 20050524
  2. PERMAX [Concomitant]
     Indication: PARKINSON'S DISEASE
     Route: 048
     Dates: start: 20000501
  3. SINEMET CR [Concomitant]
     Indication: PARKINSON'S DISEASE
     Route: 048
     Dates: start: 20000517
  4. SINEMET [Concomitant]
     Indication: PARKINSON'S DISEASE
     Route: 048
     Dates: start: 20001201
  5. SINEMET [Concomitant]
     Route: 048
     Dates: start: 20001201
  6. CLONAZEPAM [Concomitant]
     Indication: PARKINSON'S DISEASE
     Dates: start: 20000516
  7. CLONAZEPAM [Concomitant]
     Dates: start: 20001201
  8. PAXIL [Concomitant]
     Indication: DEPRESSION
     Route: 048
     Dates: start: 20000301, end: 20001201
  9. CARBIDOPA AND LEVODOPA [Concomitant]
     Indication: PARKINSON'S DISEASE
     Route: 048
     Dates: start: 20001201
  10. CARBIDOPA AND LEVODOPA [Concomitant]
     Indication: PARKINSON'S DISEASE
     Route: 048
     Dates: start: 20000516
  11. CELEXA [Concomitant]
     Indication: DEPRESSION
     Route: 048
     Dates: start: 20001201
  12. MEVACOR [Concomitant]
  13. LEXAPRO [Concomitant]
     Indication: DEPRESSION
  14. COMTAN [Concomitant]
  15. FOLIC ACID [Concomitant]
  16. VITAMIN B COMPLEX CAP [Concomitant]
  17. LAMISIL [Concomitant]
     Indication: ONYCHOMYCOSIS
     Dates: start: 20051201

REACTIONS (8)
  - DEPRESSION [None]
  - LIBIDO INCREASED [None]
  - OBSESSIVE-COMPULSIVE DISORDER [None]
  - OVERDOSE [None]
  - PATHOLOGICAL GAMBLING [None]
  - SUDDEN ONSET OF SLEEP [None]
  - SUICIDAL IDEATION [None]
  - VIRAL UPPER RESPIRATORY TRACT INFECTION [None]
